FAERS Safety Report 17736928 (Version 1)
Quarter: 2020Q2

REPORT INFORMATION
  Report Type: Report from Study
  Country: DE (occurrence: DE)
  Receive Date: 20200502
  Receipt Date: 20200502
  Transmission Date: 20200714
  Serious: Yes (Hospitalization)
  Sender: FDA-Public Use
  Company Number: DE-TEVA-2020-DE-1228433

PATIENT
  Age: 65 Year
  Sex: Female
  Weight: 72 kg

DRUGS (9)
  1. AVASTIN [Suspect]
     Active Substance: BEVACIZUMAB
     Indication: OVARIAN CANCER
     Dosage: 1080 MILLIGRAM
     Route: 042
     Dates: start: 20120709, end: 20120709
  2. FRAXIPARINE [Concomitant]
     Active Substance: NADROPARIN CALCIUM
     Indication: PROPHYLAXIS
     Dosage: LAST DOSE PRIOR TO THE EVENT : 09/OCT/2012:8000 IU
     Route: 058
  3. PACLITAXEL. [Suspect]
     Active Substance: PACLITAXEL
     Indication: OVARIAN CANCER
     Route: 042
     Dates: start: 20120618, end: 20120618
  4. TAMBOCOR [Concomitant]
     Active Substance: FLECAINIDE ACETATE
     Indication: HYPERTENSION
     Dosage: LAST DOSE PRIOR TO THE EVENT : 09/OCT/2012:100 MILLIGRAM
     Route: 048
  5. CARBOPLATIN. [Suspect]
     Active Substance: CARBOPLATIN
     Route: 042
     Dates: start: 20120618, end: 20120618
  6. BEVACIZUMAB. [Suspect]
     Active Substance: BEVACIZUMAB
     Dosage: LAST DOSE PRIOR TO THE EVENT : 01/OCT/2012:1035 MILLIGRAM
     Route: 042
     Dates: start: 20121001, end: 20121001
  7. PACLITAXEL. [Suspect]
     Active Substance: PACLITAXEL
     Route: 042
     Dates: start: 20121001, end: 20121001
  8. CARBOPLATIN. [Suspect]
     Active Substance: CARBOPLATIN
     Indication: OVARIAN CANCER
     Dosage: 555 MILLIGRAM
     Route: 042
     Dates: start: 20121001, end: 20121001
  9. METOPROLOL. [Concomitant]
     Active Substance: METOPROLOL
     Indication: HYPERTENSION
     Dosage: LAST DOSE PRIOR TO THE EVENT : 09/OCT/2012:47.5 MILLIGRAM
     Route: 048
     Dates: start: 2004

REACTIONS (1)
  - Herpes zoster oticus [Unknown]

NARRATIVE: CASE EVENT DATE: 20121009
